FAERS Safety Report 4878593-X (Version None)
Quarter: 2006Q1

REPORT INFORMATION
  Report Type: 
  Country: None (occurrence: None)
  Receive Date: 20060112
  Receipt Date: 20040301
  Transmission Date: 20060701
  Serious: Yes (Death, Hospitalization)
  Sender: FDA-Public Use
  Company Number: JP-BOEHRINGER INGELHEIM PHARMACEUTICALS, INC.-2004-BP-01541NB

PATIENT
  Sex: Female
  Weight: 54 kg

DRUGS (23)
  1. BI-SIFROL TABLETS [Suspect]
     Indication: PARKINSON'S DISEASE
     Route: 048
     Dates: start: 20040205, end: 20040301
  2. VOLTAREN [Suspect]
     Indication: SPINAL OSTEOARTHRITIS
     Route: 048
     Dates: start: 20030924, end: 20040301
  3. CEFZON [Suspect]
     Indication: CONTUSION
     Route: 048
     Dates: start: 20040204, end: 20040301
  4. MUCOSTA [Suspect]
     Indication: PROPHYLAXIS AGAINST GASTROINTESTINAL ULCER
     Route: 048
     Dates: start: 20040204, end: 20040301
  5. EC DOPARL [Concomitant]
     Indication: PARKINSON'S DISEASE
     Route: 048
     Dates: start: 20030413
  6. FP [Concomitant]
     Indication: PARKINSON'S DISEASE
     Route: 048
     Dates: start: 20000906
  7. DEPAS [Concomitant]
     Indication: AUTONOMIC NERVOUS SYSTEM IMBALANCE
     Route: 048
     Dates: start: 20010808
  8. NAUZELIN [Concomitant]
     Indication: NAUSEA
     Route: 048
     Dates: start: 20030413
  9. ALFAROL [Concomitant]
     Indication: OSTEOPOROSIS
     Route: 048
     Dates: start: 20030413, end: 20040301
  10. ACINON [Concomitant]
     Indication: PROPHYLAXIS AGAINST GASTROINTESTINAL ULCER
     Route: 048
     Dates: start: 20030413, end: 20040229
  11. SENNOSIDE [Concomitant]
     Indication: DYSPEPSIA
     Route: 048
     Dates: start: 20040210
  12. BIOFERMIN [Concomitant]
     Indication: DYSPEPSIA
     Route: 048
     Dates: start: 20030413
  13. DIART [Concomitant]
     Indication: OEDEMA
     Route: 048
     Dates: start: 20030702, end: 20040301
  14. MOHRUS TAPE [Concomitant]
     Indication: SPINAL OSTEOARTHRITIS
     Route: 061
     Dates: start: 20030519, end: 20040301
  15. ADOFEED [Concomitant]
     Indication: SPINAL OSTEOARTHRITIS
     Route: 061
     Dates: start: 20030604
  16. ELCITONIN [Concomitant]
     Indication: OSTEOPOROSIS
     Route: 030
     Dates: start: 20030919, end: 20040301
  17. NEUROTROPIN [Concomitant]
     Indication: OSTEOARTHRITIS
     Route: 048
     Dates: start: 20031008, end: 20040301
  18. GLAKAY [Concomitant]
     Indication: OSTEOPOROSIS
     Route: 048
     Dates: start: 20030924, end: 20040301
  19. ASPARA-CA [Concomitant]
     Indication: OSTEOPOROSIS
     Route: 048
     Dates: start: 20030924, end: 20040301
  20. GENTACIN [Concomitant]
     Indication: CONTUSION
     Route: 061
     Dates: start: 20040114, end: 20040301
  21. ISODINE [Concomitant]
     Indication: CONTUSION
     Route: 061
     Dates: start: 20040114, end: 20040301
  22. GLYCERIN [Concomitant]
     Indication: DYSPEPSIA
     Dates: start: 20040210, end: 20040301
  23. LECICARBON [Concomitant]
     Indication: DYSPEPSIA
     Dates: start: 20040210, end: 20040301

REACTIONS (4)
  - CONSTIPATION [None]
  - DEATH [None]
  - DYSPEPSIA [None]
  - NEPHROTIC SYNDROME [None]
